FAERS Safety Report 5915025-4 (Version None)
Quarter: 2008Q4

REPORT INFORMATION
  Report Type: 
  Country: None (occurrence: None)
  Receive Date: 20081010
  Receipt Date: 20081002
  Transmission Date: 20090506
  Serious: Yes (Other)
  Sender: FDA-Public Use
  Company Number: GB-GILEAD-2008-0018107

PATIENT
  Age: 30 Year
  Sex: Male

DRUGS (2)
  1. ATRIPLA [Suspect]
  2. FLUTICONASONE [Concomitant]

REACTIONS (4)
  - MUCOSAL ULCERATION [None]
  - PRURITUS [None]
  - RASH [None]
  - THROMBOCYTOPENIA [None]
